FAERS Safety Report 6518279-9 (Version None)
Quarter: 2009Q4

REPORT INFORMATION
  Report Type: 
  Country: None (occurrence: None)
  Receive Date: 20091223
  Receipt Date: 20091223
  Transmission Date: 20100525
  Serious: Yes (Hospitalization, Other)
  Sender: FDA-Public Use
  Company Number: None

PATIENT
  Sex: Female
  Weight: 90.7194 kg

DRUGS (2)
  1. SAVELLA [Suspect]
     Indication: FIBROMYALGIA
     Dosage: 1 TAB BID PO
     Route: 048
     Dates: start: 20091016, end: 20091212
  2. SAVELLA [Suspect]
     Indication: SYSTEMIC LUPUS ERYTHEMATOSUS
     Dosage: 1 TAB BID PO
     Route: 048
     Dates: start: 20091016, end: 20091212

REACTIONS (7)
  - CHILLS [None]
  - FOOD ALLERGY [None]
  - IMMUNE SYSTEM DISORDER [None]
  - LUNG DISORDER [None]
  - REACTION TO COLOURING [None]
  - STATUS ASTHMATICUS [None]
  - TEMPERATURE REGULATION DISORDER [None]
